FAERS Safety Report 25257388 (Version 2)
Quarter: 2025Q3

REPORT INFORMATION
  Report Type: Spontaneous
  Country: EU (occurrence: EU)
  Receive Date: 20250430
  Receipt Date: 20250822
  Transmission Date: 20251020
  Serious: Yes (Other)
  Sender: TAKEDA
  Company Number: EU-JNJFOC-20250437511

PATIENT
  Age: 60 Year
  Sex: Male

DRUGS (11)
  1. VELCADE [Suspect]
     Active Substance: BORTEZOMIB
     Indication: Plasma cell myeloma
  2. VELCADE [Suspect]
     Active Substance: BORTEZOMIB
  3. VELCADE [Suspect]
     Active Substance: BORTEZOMIB
  4. DEXAMETHASONE [Suspect]
     Active Substance: DEXAMETHASONE
     Indication: Plasma cell myeloma
  5. DEXAMETHASONE [Suspect]
     Active Substance: DEXAMETHASONE
  6. DEXAMETHASONE [Suspect]
     Active Substance: DEXAMETHASONE
  7. DARZALEX [Suspect]
     Active Substance: DARATUMUMAB
     Indication: Plasma cell myeloma
  8. DARZALEX [Suspect]
     Active Substance: DARATUMUMAB
  9. DARZALEX [Suspect]
     Active Substance: DARATUMUMAB
  10. DARZALEX [Suspect]
     Active Substance: DARATUMUMAB
  11. DARZALEX [Suspect]
     Active Substance: DARATUMUMAB

REACTIONS (1)
  - Plasma cell myeloma [Unknown]
